APPROVED DRUG PRODUCT: PLERIXAFOR
Active Ingredient: PLERIXAFOR
Strength: 24MG/1.2ML (20MG/ML)
Dosage Form/Route: SOLUTION;SUBCUTANEOUS
Application: A215334 | Product #001 | TE Code: AP
Applicant: AMNEAL EU LTD
Approved: Jul 24, 2023 | RLD: No | RS: No | Type: RX